FAERS Safety Report 4963933-3 (Version None)
Quarter: 2006Q2

REPORT INFORMATION
  Report Type: 
  Country: None (occurrence: None)
  Receive Date: 20060405
  Receipt Date: 20060330
  Transmission Date: 20061013
  Serious: Yes (Other)
  Sender: FDA-Public Use
  Company Number: US-MERCK-0603USA04658

PATIENT
  Sex: Female

DRUGS (1)
  1. VYTORIN [Suspect]
     Indication: HYPERLIPIDAEMIA
     Route: 048
     Dates: start: 20050101

REACTIONS (1)
  - CUTANEOUS LUPUS ERYTHEMATOSUS [None]
